FAERS Safety Report 7674904-0 (Version None)
Quarter: 2011Q3

REPORT INFORMATION
  Report Type: 
  Country: None (occurrence: None)
  Receive Date: 20110810
  Receipt Date: 20110728
  Transmission Date: 20111222
  Serious: Yes (Death)
  Sender: FDA-Public Use
  Company Number: US-ELI_LILLY_AND_COMPANY-US201107007900

PATIENT
  Sex: Female

DRUGS (2)
  1. ZYPREXA [Suspect]
     Indication: TREATMENT NONCOMPLIANCE
     Dosage: UNK
     Dates: start: 20110121
  2. OXYGEN [Concomitant]

REACTIONS (9)
  - PNEUMONIA ASPIRATION [None]
  - AGGRESSION [None]
  - HALLUCINATION [None]
  - COGNITIVE DISORDER [None]
  - DYSPHAGIA [None]
  - DYSPNOEA [None]
  - AGITATION [None]
  - MIOSIS [None]
  - OFF LABEL USE [None]
